FAERS Safety Report 9101247 (Version 2)
Quarter: 2013Q1

REPORT INFORMATION
  Report Type: Spontaneous
  Country: US (occurrence: US)
  Receive Date: 20130218
  Receipt Date: 20130222
  Transmission Date: 20140127
  Serious: Yes (Death, Hospitalization)
  Sender: FDA-Public Use
  Company Number: US-BAXTER-2013BAX005475

PATIENT
  Age: 81 Year
  Sex: Male

DRUGS (2)
  1. DIANEAL LOW CALCIUM [Suspect]
     Indication: PERITONEAL DIALYSIS
     Route: 033
     Dates: end: 20130204
  2. DIANEAL LOW CALCIUM [Suspect]
     Indication: PERITONEAL DIALYSIS
     Route: 033
     Dates: end: 20130204

REACTIONS (6)
  - Azotaemia [Fatal]
  - Refusal of treatment by patient [Fatal]
  - Chronic obstructive pulmonary disease [Fatal]
  - Renal failure chronic [Fatal]
  - Hypertensive nephropathy [Fatal]
  - Pneumonia [Unknown]
